FAERS Safety Report 8789568 (Version 1)
Quarter: 2012Q4

REPORT INFORMATION
  Report Type: Spontaneous
  Country: US (occurrence: None)
  Receive Date: 20120910
  Receipt Date: 20120910
  Transmission Date: 20130627
  Serious: Yes (Death, Other)
  Sender: FDA-Public Use
  Company Number: None

PATIENT
  Age: 31 Year
  Sex: Female
  Weight: 62.6 kg

DRUGS (4)
  1. MIRENA [Suspect]
     Dosage: Intra-uterine
     Route: 015
     Dates: start: 20111201, end: 20120901
  2. MIRENA [Suspect]
     Dates: start: 20061201, end: 20111201
  3. IBUPROFEN [Concomitant]
  4. FEXOFENADINE [Concomitant]

REACTIONS (8)
  - Abdominal pain [None]
  - Abdominal distension [None]
  - Weight increased [None]
  - Breast swelling [None]
  - Breast tenderness [None]
  - Constipation [None]
  - Hypertension [None]
  - Agitation [None]
